FAERS Safety Report 9778935 (Version 1)
Quarter: 2013Q4

REPORT INFORMATION
  Report Type: Spontaneous
  Country: CA (occurrence: CA)
  Receive Date: 20131223
  Receipt Date: 20131223
  Transmission Date: 20140711
  Serious: Yes (Hospitalization, Disabling, Other)
  Sender: FDA-Public Use
  Company Number: CA-B.I. PHARMACEUTICALS,INC./RIDGEFIELD-2013-BI-42468CN

PATIENT
  Age: 57 Year
  Sex: Male
  Weight: 95 kg

DRUGS (3)
  1. PRADAX [Suspect]
     Dosage: 300 MG
     Route: 048
  2. METOPROLOL [Concomitant]
  3. RAMIPRIL [Concomitant]

REACTIONS (5)
  - Embolic stroke [Unknown]
  - Haemorrhage intracranial [Unknown]
  - Ischaemic stroke [Unknown]
  - Haemorrhagic transformation stroke [Unknown]
  - Drug ineffective [Unknown]
